FAERS Safety Report 21560146 (Version 2)
Quarter: 2022Q4

REPORT INFORMATION
  Report Type: Spontaneous
  Country: JP (occurrence: JP)
  Receive Date: 20221107
  Receipt Date: 20221118
  Transmission Date: 20230113
  Serious: Yes (Hospitalization, Other)
  Sender: FDA-Public Use
  Company Number: JP-MYLANLABS-2022M1119341

PATIENT
  Age: 3 Decade
  Sex: Male

DRUGS (4)
  1. VENLAFAXINE HYDROCHLORIDE [Suspect]
     Active Substance: VENLAFAXINE HYDROCHLORIDE
     Indication: Abulia
     Dosage: 37.5 MILLIGRAM
     Route: 048
     Dates: start: 20220627
  2. VENLAFAXINE HYDROCHLORIDE [Suspect]
     Active Substance: VENLAFAXINE HYDROCHLORIDE
     Dosage: 75 MILLIGRAM
     Route: 048
     Dates: end: 20220720
  3. BROMISOVAL [Suspect]
     Active Substance: BROMISOVAL
     Indication: Product used for unknown indication
     Dosage: UNK
     Route: 065
  4. BROMISOVAL [Suspect]
     Active Substance: BROMISOVAL
     Dosage: 150 DOSAGE FORM
     Route: 048
     Dates: start: 20220721, end: 20220721

REACTIONS (2)
  - Suicidal ideation [Recovered/Resolved]
  - Off label use [Unknown]

NARRATIVE: CASE EVENT DATE: 20220721
